FAERS Safety Report 9266620 (Version 2)
Quarter: 2013Q2

REPORT INFORMATION
  Report Type: Report from Study
  Country: US (occurrence: US)
  Receive Date: 20130502
  Receipt Date: 20130522
  Transmission Date: 20140414
  Serious: Yes (Other)
  Sender: FDA-Public Use
  Company Number: US-BAYER-2013-005996

PATIENT
  Age: 71 Year
  Sex: Female

DRUGS (3)
  1. STIVARGA [Suspect]
     Indication: COLON CANCER
     Dosage: 160 MG, QD
     Route: 048
     Dates: start: 20121226, end: 20130110
  2. STIVARGA [Suspect]
     Indication: COLON CANCER
     Dosage: 80 MG, QD
     Route: 048
     Dates: start: 2013, end: 2013
  3. STIVARGA [Suspect]
     Indication: COLON CANCER
     Dosage: 120 MG DAILY DOSE
     Route: 048

REACTIONS (8)
  - Abasia [None]
  - Rash generalised [Recovering/Resolving]
  - Pain in extremity [None]
  - Erythema [None]
  - Blister [None]
  - Hyperkeratosis [None]
  - Skin exfoliation [None]
  - Drug ineffective [None]
